FAERS Safety Report 4332940-6 (Version None)
Quarter: 2004Q1

REPORT INFORMATION
  Report Type: 
  Country: None (occurrence: None)
  Receive Date: 20040330
  Receipt Date: 20040313
  Transmission Date: 20041129
  Serious: Yes (Hospitalization)
  Sender: FDA-Public Use
  Company Number: A03200400823

PATIENT
  Age: 67 Year
  Sex: Female
  Weight: 56.6996 kg

DRUGS (7)
  1. PLAVIX [Suspect]
     Indication: CEREBROVASCULAR ACCIDENT
     Dosage: 75 MG QD - ORAL
     Route: 048
     Dates: start: 19990101, end: 19990101
  2. PLAVIX [Suspect]
     Indication: CEREBROVASCULAR ACCIDENT
     Dosage: 75 MG QD - ORAL
     Route: 048
     Dates: start: 19990101, end: 20010101
  3. FOLIC ACID [Concomitant]
  4. NIFEDIPINE [Concomitant]
  5. ORPHENADRINE+ASPIRIN+CEFFEINE [Concomitant]
  6. GEMFIBROZIL [Concomitant]
  7. AMITRIPTYLINE HCL [Concomitant]

REACTIONS (4)
  - DEPRESSED LEVEL OF CONSCIOUSNESS [None]
  - DIABETIC COMPLICATION [None]
  - FEELING ABNORMAL [None]
  - WEIGHT DECREASED [None]
